FAERS Safety Report 4783415-1 (Version None)
Quarter: 2005Q3

REPORT INFORMATION
  Report Type: 
  Country: None (occurrence: None)
  Receive Date: 20050929
  Receipt Date: 20050920
  Transmission Date: 20060218
  Serious: Yes (Hospitalization, Other)
  Sender: FDA-Public Use
  Company Number: FR-BRISTOL-MYERS SQUIBB COMPANY-13118518

PATIENT
  Age: 42 Year
  Sex: Male
  Weight: 57 kg

DRUGS (4)
  1. REYATAZ [Suspect]
     Indication: HIV INFECTION
     Route: 048
     Dates: start: 20050419, end: 20050914
  2. VIDEX [Suspect]
     Route: 048
     Dates: start: 20050419
  3. NORVIR [Suspect]
     Dates: start: 20050419
  4. EMTRIVA [Suspect]
     Dates: start: 20050419, end: 20050914

REACTIONS (1)
  - PROGRESSIVE MULTIFOCAL LEUKOENCEPHALOPATHY [None]
